FAERS Safety Report 6372106-1 (Version None)
Quarter: 2009Q3

REPORT INFORMATION
  Report Type: 
  Country: None (occurrence: None)
  Receive Date: 20090917
  Receipt Date: 20090904
  Transmission Date: 20100115
  Serious: Yes (Disabling)
  Sender: FDA-Public Use
  Company Number: ADR17832009

PATIENT
  Age: 35 Year
  Sex: Male

DRUGS (4)
  1. CITALOPRAM HYDROBROMIDE [Suspect]
     Indication: ANXIETY
     Dosage: 20 MG PER DAY, ORAL
     Route: 048
     Dates: start: 20060227, end: 20061031
  2. CITALOPRAM HYDROBROMIDE [Concomitant]
     Indication: DEPRESSION
     Dosage: 40 MG PER DAY
     Dates: start: 20061031, end: 20070214
  3. PROPRANOLOL [Concomitant]
  4. ZOPICLONE 3.75 MG [Concomitant]

REACTIONS (1)
  - MUSCLE TWITCHING [None]
